FAERS Safety Report 6944665-9 (Version None)
Quarter: 2010Q3

REPORT INFORMATION
  Report Type: 
  Country: None (occurrence: None)
  Receive Date: 20100827
  Receipt Date: 20100817
  Transmission Date: 20110219
  Serious: Yes (Death)
  Sender: FDA-Public Use
  Company Number: FR-EISAI INC.-E3810-04025-SPO-FR

PATIENT
  Sex: Female

DRUGS (17)
  1. PARIET (RABEPRAZOLE) [Suspect]
     Route: 048
     Dates: start: 20100713
  2. FURADANTINE [Suspect]
     Route: 048
     Dates: start: 20100721, end: 20100727
  3. METOJECT [Suspect]
     Route: 030
     Dates: start: 20050101, end: 20100716
  4. APROVEL [Suspect]
     Route: 048
     Dates: start: 20100105
  5. SECTRAL [Suspect]
     Route: 048
     Dates: start: 20100105
  6. LASIX [Suspect]
     Route: 048
     Dates: start: 20100105, end: 20100710
  7. BETAHISTINE [Suspect]
     Route: 048
     Dates: start: 20100105, end: 20100710
  8. TARDYFERON [Suspect]
     Route: 048
     Dates: start: 20100720
  9. IMOVANE [Suspect]
     Dosage: 0.5 DOSE
     Route: 048
     Dates: start: 20100630
  10. PREVISCAN [Suspect]
     Indication: DEEP VEIN THROMBOSIS
     Route: 048
     Dates: start: 20100707
  11. ATHYMIL [Suspect]
     Route: 048
     Dates: start: 20100716
  12. CALCIPARINE [Concomitant]
     Indication: DEEP VEIN THROMBOSIS
     Dosage: 0.2ML
     Dates: start: 20100101, end: 20100101
  13. CALCIPARINE [Concomitant]
     Dosage: 0.6ML
     Dates: start: 20100101, end: 20100101
  14. FLUINDIONE [Concomitant]
     Dates: start: 20100101, end: 20100705
  15. DIFFU K [Concomitant]
     Dates: start: 20100101, end: 20100705
  16. LAMALINE [Concomitant]
     Route: 048
     Dates: start: 20100101
  17. MEMANTINE HCL [Concomitant]
     Dates: start: 20100101

REACTIONS (3)
  - ACUTE RESPIRATORY DISTRESS SYNDROME [None]
  - INTERSTITIAL LUNG DISEASE [None]
  - URINARY TRACT INFECTION [None]
